FAERS Safety Report 23769889 (Version 1)
Quarter: 2024Q2

REPORT INFORMATION
  Report Type: Spontaneous
  Country: US (occurrence: None)
  Receive Date: 20240421
  Receipt Date: 20240421
  Transmission Date: 20240716
  Serious: Yes (Hospitalization, Other)
  Sender: FDA-Public Use
  Company Number: None

PATIENT
  Age: 61 Year
  Sex: Female
  Weight: 58.5 kg

DRUGS (11)
  1. YESCARTA [Suspect]
     Active Substance: AXICABTAGENE CILOLEUCEL
     Indication: Diffuse large B-cell lymphoma
     Dosage: OTHER FREQUENCY : ONCE?
     Route: 040
     Dates: start: 20231127, end: 20231127
  2. LEVAQUIN [Concomitant]
     Active Substance: LEVOFLOXACIN
     Dates: start: 20231122
  3. FLUCONAZOLE [Concomitant]
     Active Substance: FLUCONAZOLE
     Dates: start: 20231122
  4. ACYCLOVIR [Concomitant]
     Active Substance: ACYCLOVIR
     Dates: start: 20231122
  5. BACTRIM [Concomitant]
     Active Substance: SULFAMETHOXAZOLE\TRIMETHOPRIM
     Dates: start: 20231122
  6. KEPPRA [Concomitant]
     Active Substance: LEVETIRACETAM
     Dates: start: 20231126, end: 20240112
  7. BUPROPION [Concomitant]
     Active Substance: BUPROPION
  8. DULOXETINE [Concomitant]
     Active Substance: DULOXETINE
  9. GABAPENTIN [Concomitant]
     Active Substance: GABAPENTIN
  10. OMEPRAZOLE [Concomitant]
     Active Substance: OMEPRAZOLE
  11. TRAZODONE [Concomitant]
     Active Substance: TRAZODONE HYDROCHLORIDE

REACTIONS (9)
  - Dizziness postural [None]
  - Cytokine release syndrome [None]
  - Orthostatic hypotension [None]
  - Neurotoxicity [None]
  - Fall [None]
  - Dyskinesia [None]
  - Muscle twitching [None]
  - Tremor [None]
  - Muscle disorder [None]

NARRATIVE: CASE EVENT DATE: 20231209
